FAERS Safety Report 11351246 (Version 1)
Quarter: 2015Q3

REPORT INFORMATION
  Report Type: Spontaneous
  Country: US (occurrence: None)
  Receive Date: 20150806
  Receipt Date: 20150806
  Transmission Date: 20151125
  Serious: Yes (Hospitalization)
  Sender: FDA-Public Use
  Company Number: None

PATIENT
  Age: 74 Year
  Sex: Male
  Weight: 98 kg

DRUGS (1)
  1. TICAGRELOR 90MG AZTRAZENECA [Suspect]
     Active Substance: TICAGRELOR
     Indication: STENT PLACEMENT

REACTIONS (3)
  - Hypotension [None]
  - Thrombocytopenia [None]
  - Pericardial effusion [None]

NARRATIVE: CASE EVENT DATE: 20150803
